FAERS Safety Report 23482066 (Version 2)
Quarter: 2024Q1

REPORT INFORMATION
  Report Type: Spontaneous
  Country: US (occurrence: US)
  Receive Date: 20240205
  Receipt Date: 20240226
  Transmission Date: 20240409
  Serious: No
  Sender: FDA-Public Use
  Company Number: US-Calliditas-2024CAL00123

PATIENT
  Age: 75 Year
  Sex: Male

DRUGS (1)
  1. TARPEYO [Suspect]
     Active Substance: BUDESONIDE
     Indication: IgA nephropathy
     Dosage: 16 MG (4 MG CAPSULES) ONCE DAILY
     Route: 048
     Dates: start: 20231229

REACTIONS (12)
  - Weight increased [Unknown]
  - Visual impairment [Unknown]
  - Vision blurred [Unknown]
  - Dyspepsia [Unknown]
  - Abdominal pain upper [Unknown]
  - Tremor [Unknown]
  - Feeling jittery [Unknown]
  - Accommodation disorder [Unknown]
  - Abdominal pain upper [Unknown]
  - Gastrooesophageal reflux disease [Unknown]
  - Headache [Unknown]
  - Prescribed underdose [Unknown]
